FAERS Safety Report 14453108 (Version 1)
Quarter: 2018Q1

REPORT INFORMATION
  Report Type: Spontaneous
  Country: JP (occurrence: JP)
  Receive Date: 20180124
  Receipt Date: 20180124
  Transmission Date: 20180509
  Serious: Yes (Hospitalization, Other)
  Sender: FDA-Public Use
  Company Number: JP-ROCHE-2010915

PATIENT
  Age: 11 Year
  Sex: Male
  Weight: 32 kg

DRUGS (7)
  1. ENALART [Concomitant]
     Active Substance: ENALAPRIL MALEATE
     Dosage: DOSAGE IS UNCERTAIN.
     Route: 065
     Dates: start: 20110331, end: 20140305
  2. ONEALFA [Concomitant]
     Active Substance: ALFACALCIDOL
     Dosage: DOSAGE IS UNCERTAIN.
     Route: 065
     Dates: start: 20110329, end: 20161228
  3. PREDNISOLONE. [Concomitant]
     Active Substance: PREDNISOLONE
     Dosage: DOSAGE IS UNCERTAIN.
     Route: 065
  4. TACROLIMUS HYDRATE [Concomitant]
     Active Substance: TACROLIMUS
     Dosage: DOSAGE IS UNCERTAIN.
     Route: 065
  5. KETOTIFEN FUMARATE. [Concomitant]
     Active Substance: KETOTIFEN FUMARATE
     Dosage: DOSAGE IS UNCERTAIN.
     Route: 065
     Dates: start: 20110401, end: 20170921
  6. ACTEMRA [Suspect]
     Active Substance: TOCILIZUMAB
     Indication: STILL^S DISEASE
     Dosage: DOSAGE IS UNCERTAIN.
     Route: 042
     Dates: start: 200502
  7. FAMOTIDINE. [Concomitant]
     Active Substance: FAMOTIDINE
     Dosage: DOSAGE IS UNCERTAIN.
     Route: 065
     Dates: start: 200407, end: 20160301

REACTIONS (11)
  - Pulmonary mycosis [Unknown]
  - Diarrhoea [Unknown]
  - Arthritis [Unknown]
  - Hepatic function abnormal [Unknown]
  - Ureterolithiasis [Unknown]
  - Vomiting [Unknown]
  - Histiocytosis haematophagic [Unknown]
  - Pericarditis [Unknown]
  - Hypovolaemic shock [Unknown]
  - Myocarditis [Recovering/Resolving]
  - Constipation [Unknown]

NARRATIVE: CASE EVENT DATE: 200809
